FAERS Safety Report 5403426-2 (Version None)
Quarter: 2007Q3

REPORT INFORMATION
  Report Type: 
  Country: None (occurrence: None)
  Receive Date: 20070713
  Receipt Date: 20070510
  Transmission Date: 20080115
  Serious: Yes (Hospitalization)
  Sender: FDA-Public Use
  Company Number: US-JNJFOC-20061103172

PATIENT
  Age: 23 Year
  Sex: Female
  Weight: 73.9363 kg

DRUGS (2)
  1. ORTHO EVRA [Suspect]
     Indication: CONTRACEPTION
     Dates: end: 20041209
  2. ORTHO EVRA [Suspect]
     Indication: CONTRACEPTION
     Dates: start: 20030321

REACTIONS (1)
  - CEREBROVASCULAR ACCIDENT [None]
